FAERS Safety Report 19503695 (Version 1)
Quarter: 2021Q3

REPORT INFORMATION
  Report Type: Report from Study
  Country: CA (occurrence: CA)
  Receive Date: 20210707
  Receipt Date: 20210707
  Transmission Date: 20211014
  Serious: Yes (Hospitalization, Other)
  Sender: FDA-Public Use
  Company Number: NVSC2021CA026203

PATIENT
  Sex: Male

DRUGS (4)
  1. RIXIMYO [Suspect]
     Active Substance: RITUXIMAB
     Indication: IMMUNOGLOBULIN G4 RELATED DISEASE
     Dosage: UNK (VIAL)
     Route: 042
     Dates: start: 20210107
  2. MYCOPHENOLIC ACID. [Suspect]
     Active Substance: MYCOPHENOLIC ACID
     Indication: PRODUCT USED FOR UNKNOWN INDICATION
     Dosage: 720 MG, BID
     Route: 065
  3. RISEDRONATE [Suspect]
     Active Substance: RISEDRONATE SODIUM
     Indication: PRODUCT USED FOR UNKNOWN INDICATION
     Dosage: UNK
     Route: 065
  4. RIXIMYO [Suspect]
     Active Substance: RITUXIMAB
     Indication: OBSTRUCTIVE PANCREATITIS
     Dosage: 1000 MG (DAY 01 AND 15, FOLLOWED BY EVERY 6 MONTHS)
     Route: 042

REACTIONS (9)
  - Hepatic encephalopathy [Unknown]
  - Nausea [Unknown]
  - Immunoglobulin G4 related disease [Unknown]
  - Diarrhoea [Unknown]
  - Gastritis [Unknown]
  - Product use in unapproved indication [Unknown]
  - Blood bilirubin increased [Unknown]
  - Obstructive pancreatitis [Unknown]
  - Soft tissue disorder [Unknown]
